FAERS Safety Report 5191420-9 (Version None)
Quarter: 2006Q4

REPORT INFORMATION
  Report Type: 
  Country: None (occurrence: None)
  Receive Date: 20061226
  Receipt Date: 20061205
  Transmission Date: 20070319
  Serious: Yes (Hospitalization, Other)
  Sender: FDA-Public Use
  Company Number: 2006AP05804

PATIENT
  Age: 16743 Day
  Sex: Male

DRUGS (6)
  1. SEROQUEL [Suspect]
     Indication: DELUSION
     Dosage: 400MG DIVIDED INTO 3 DOSES
     Route: 048
     Dates: start: 20061108, end: 20061122
  2. ZYPREXA [Suspect]
     Indication: DELUSION
     Route: 048
     Dates: start: 20060817
  3. ZYPREXA [Suspect]
     Route: 048
     Dates: start: 20061016, end: 20061107
  4. BIPERIDEN HYDROCHLORIDE TAB [Concomitant]
     Indication: AKATHISIA
     Route: 048
     Dates: start: 20060830, end: 20061122
  5. MAGNESIUM OXIDE [Concomitant]
     Indication: CONSTIPATION
     Route: 048
     Dates: start: 20061106, end: 20061122
  6. NELUROLEN [Concomitant]
     Indication: INSOMNIA
     Route: 048
     Dates: start: 20060706, end: 20061122

REACTIONS (1)
  - PANCYTOPENIA [None]
